FAERS Safety Report 18015363 (Version 1)
Quarter: 2020Q3

REPORT INFORMATION
  Report Type: Spontaneous
  Country: IT (occurrence: IT)
  Receive Date: 20200713
  Receipt Date: 20200713
  Transmission Date: 20201103
  Serious: Yes (Life-Threatening)
  Sender: FDA-Public Use
  Company Number: IT-DSJP-DSE-2020-119283

PATIENT

DRUGS (1)
  1. EDOXABAN [Suspect]
     Active Substance: EDOXABAN TOSYLATE
     Indication: CARDIAC FIBRILLATION
     Dosage: 30 MG, QD
     Dates: start: 20200409, end: 20200423

REACTIONS (3)
  - Jaundice cholestatic [Recovered/Resolved]
  - Gastrointestinal haemorrhage [Recovered/Resolved]
  - Cardiac failure [Recovered/Resolved]

NARRATIVE: CASE EVENT DATE: 20200420
